FAERS Safety Report 6829794-2 (Version None)
Quarter: 2010Q3

REPORT INFORMATION
  Report Type: 
  Country: None (occurrence: None)
  Receive Date: 20100709
  Receipt Date: 20070815
  Transmission Date: 20110219
  Serious: No
  Sender: FDA-Public Use
  Company Number: US-PFIZER INC-2007012984

PATIENT
  Sex: Female
  Weight: 89.81 kg

DRUGS (2)
  1. CHANTIX [Suspect]
     Indication: SMOKING CESSATION THERAPY
     Dates: start: 20070301, end: 20070401
  2. LISINOPRIL [Concomitant]
     Indication: HYPERTENSION

REACTIONS (4)
  - INCORRECT DOSE ADMINISTERED [None]
  - NASAL DISCOMFORT [None]
  - NAUSEA [None]
  - VOMITING [None]
